FAERS Safety Report 8498262-7 (Version None)
Quarter: 2012Q3

REPORT INFORMATION
  Report Type: 
  Country: None (occurrence: None)
  Receive Date: 20120709
  Receipt Date: 20120620
  Transmission Date: 20120928
  Serious: No
  Sender: FDA-Public Use
  Company Number: US-AMGEN-USASP2012029489

PATIENT
  Age: 47 Year
  Sex: Female

DRUGS (2)
  1. ORENCIA [Concomitant]
  2. ENBREL [Suspect]
     Indication: RHEUMATOID ARTHRITIS
     Dosage: 50 MG, QWK
     Dates: start: 20120401

REACTIONS (9)
  - NIGHT SWEATS [None]
  - BLOOD PRESSURE INCREASED [None]
  - RASH [None]
  - MENOPAUSE [None]
  - SWELLING [None]
  - BLOOD CHOLESTEROL INCREASED [None]
  - HYPERSENSITIVITY [None]
  - PRURITUS [None]
  - UPPER RESPIRATORY TRACT INFECTION [None]
